FAERS Safety Report 7767485-4 (Version None)
Quarter: 2011Q3

REPORT INFORMATION
  Report Type: 
  Country: None (occurrence: None)
  Receive Date: 20110919
  Receipt Date: 20110831
  Transmission Date: 20111222
  Serious: Yes (Hospitalization)
  Sender: FDA-Public Use
  Company Number: CIO11006840

PATIENT
  Sex: Female

DRUGS (6)
  1. CARDIOVASCULAR SYSTEM DRUGS [Concomitant]
  2. MEVACOR [Concomitant]
  3. ANTACID (CALCIUM CARBONATE) [Concomitant]
  4. METAMUCIL-2 [Suspect]
     Indication: BOWEL MOVEMENT IRREGULARITY
     Dosage: 1 PACKET, 2/DAY, ORAL
     Route: 048
     Dates: end: 20110408
  5. THYROID THERAPY [Concomitant]
  6. TRAMADOL HCL [Concomitant]

REACTIONS (4)
  - ABDOMINAL DISTENSION [None]
  - FLATULENCE [None]
  - FEELING HOT [None]
  - GASTROINTESTINAL SOUNDS ABNORMAL [None]
